FAERS Safety Report 24650783 (Version 2)
Quarter: 2025Q1

REPORT INFORMATION
  Report Type: Spontaneous
  Country: IT (occurrence: IT)
  Receive Date: 20241122
  Receipt Date: 20250207
  Transmission Date: 20250409
  Serious: Yes (Other)
  Sender: NOVARTIS
  Company Number: IT-002147023-NVSC2024IT222554

PATIENT
  Sex: Male

DRUGS (5)
  1. OFATUMUMAB [Suspect]
     Active Substance: OFATUMUMAB
     Indication: Product used for unknown indication
     Route: 058
     Dates: start: 20240521
  2. OFATUMUMAB [Suspect]
     Active Substance: OFATUMUMAB
     Route: 058
     Dates: start: 20240528
  3. OFATUMUMAB [Suspect]
     Active Substance: OFATUMUMAB
     Route: 058
     Dates: start: 20240604
  4. OFATUMUMAB [Suspect]
     Active Substance: OFATUMUMAB
     Route: 058
     Dates: start: 20240621
  5. PREGABALIN [Concomitant]
     Active Substance: PREGABALIN
     Indication: Product used for unknown indication
     Dosage: 25 MG, QD
     Route: 065

REACTIONS (6)
  - Cranial nerve injury [Recovered/Resolved]
  - Disease progression [Recovered/Resolved]
  - Speech disorder [Recovered/Resolved]
  - Malaise [Recovered/Resolved]
  - Irritability [Recovered/Resolved]
  - Oedema [Recovered/Resolved]

NARRATIVE: CASE EVENT DATE: 20241007
